FAERS Safety Report 18454083 (Version 2)
Quarter: 2020Q4

REPORT INFORMATION
  Report Type: Spontaneous
  Country: US (occurrence: US)
  Receive Date: 20201102
  Receipt Date: 20201208
  Transmission Date: 20210114
  Serious: Yes (Other)
  Sender: FDA-Public Use
  Company Number: US-GILEAD-2020-0501843

PATIENT
  Age: 39 Year
  Sex: Female
  Weight: 63.49 kg

DRUGS (1)
  1. HARVONI [Suspect]
     Active Substance: LEDIPASVIR\SOFOSBUVIR
     Indication: CHRONIC HEPATITIS C
     Dosage: 1 DOSAGE FORM, QD
     Route: 048
     Dates: start: 202003, end: 202006

REACTIONS (2)
  - Cutaneous sarcoidosis [Not Recovered/Not Resolved]
  - Pulmonary sarcoidosis [Unknown]

NARRATIVE: CASE EVENT DATE: 202005
